FAERS Safety Report 7365099-1 (Version None)
Quarter: 2011Q1

REPORT INFORMATION
  Report Type: 
  Country: None (occurrence: None)
  Receive Date: 20110321
  Receipt Date: 20110315
  Transmission Date: 20110831
  Serious: Yes (Hospitalization, Other)
  Sender: FDA-Public Use
  Company Number: US-PFIZER INC-2011050586

PATIENT
  Sex: Female

DRUGS (3)
  1. AMBIEN [Suspect]
     Indication: SLEEP DISORDER
     Dosage: 10 MG, DAILY
     Route: 048
     Dates: start: 20110201, end: 20110201
  2. LYRICA [Suspect]
     Dosage: UNK
  3. LISINOPRIL [Concomitant]

REACTIONS (5)
  - CONFUSIONAL STATE [None]
  - PNEUMONIA [None]
  - HALLUCINATION [None]
  - DIABETES MELLITUS INADEQUATE CONTROL [None]
  - DISORIENTATION [None]
